FAERS Safety Report 12882912 (Version 1)
Quarter: 2016Q4

REPORT INFORMATION
  Report Type: Spontaneous
  Country: US (occurrence: US)
  Receive Date: 20161025
  Receipt Date: 20161025
  Transmission Date: 20170207
  Serious: Yes (Other)
  Sender: FDA-Public Use
  Company Number: US-LPDUSPRD-20160942

PATIENT
  Age: 86 Year
  Sex: Male

DRUGS (2)
  1. LIDOCAINE HCL [Suspect]
     Active Substance: LIDOCAINE HYDROCHLORIDE
     Dosage: 2 ML OF 1 %
     Route: 051
  2. EPINEPHRINE INJECTION, USP (1071-25) [Suspect]
     Active Substance: EPINEPHRINE
     Dosage: 0.02 MG
     Route: 051

REACTIONS (1)
  - Atrial fibrillation [Unknown]
